FAERS Safety Report 18791334 (Version 2)
Quarter: 2021Q1

REPORT INFORMATION
  Report Type: Report from Study
  Country: None (occurrence: CA)
  Receive Date: 20210127
  Receipt Date: 20210217
  Transmission Date: 20210419
  Serious: Yes (Other)
  Sender: FDA-Public Use
  Company Number: CA-ABBVIE-21K-028-3731107-00

PATIENT
  Sex: Female

DRUGS (2)
  1. HUMIRA [Suspect]
     Active Substance: ADALIMUMAB
     Route: 058
     Dates: start: 2020
  2. HUMIRA [Suspect]
     Active Substance: ADALIMUMAB
     Indication: PSORIASIS
     Route: 058
     Dates: start: 20140825, end: 2020

REACTIONS (6)
  - Hernia [Unknown]
  - Drug ineffective [Unknown]
  - Pruritus [Recovering/Resolving]
  - Musculoskeletal disorder [Not Recovered/Not Resolved]
  - Device breakage [Recovered/Resolved]
  - Abscess [Recovered/Resolved]
